FAERS Safety Report 7301109-5 (Version None)
Quarter: 2011Q1

REPORT INFORMATION
  Report Type: 
  Country: None (occurrence: None)
  Receive Date: 20110218
  Receipt Date: 20110208
  Transmission Date: 20110831
  Serious: Yes (Other)
  Sender: FDA-Public Use
  Company Number: US-PERRIGO-11US001079

PATIENT
  Sex: Female
  Weight: 39.909 kg

DRUGS (1)
  1. FAMOTIDINE 10 MG 141 [Suspect]
     Indication: GASTROOESOPHAGEAL REFLUX DISEASE
     Dosage: 10 MG, QD
     Route: 048
     Dates: start: 20050318, end: 20101227

REACTIONS (7)
  - DECREASED APPETITE [None]
  - ABNORMAL LOSS OF WEIGHT [None]
  - PALPITATIONS [None]
  - DRUG EFFECT DECREASED [None]
  - CONDITION AGGRAVATED [None]
  - MALAISE [None]
  - INCORRECT DRUG ADMINISTRATION DURATION [None]
